FAERS Safety Report 8445622-6 (Version None)
Quarter: 2012Q2

REPORT INFORMATION
  Report Type: 
  Country: None (occurrence: None)
  Receive Date: 20120618
  Receipt Date: 20120607
  Transmission Date: 20120825
  Serious: Yes (Other)
  Sender: FDA-Public Use
  Company Number: ES-JNJFOC-20120607209

PATIENT
  Age: 36 Year
  Sex: Male

DRUGS (4)
  1. DARUNAVIR HYDRATE [Suspect]
     Indication: HIV INFECTION
     Route: 048
     Dates: start: 20090301
  2. TRUVADA [Concomitant]
     Indication: HIV INFECTION
     Route: 048
     Dates: start: 20090301
  3. RITUXIMAB [Concomitant]
     Indication: CASTLEMAN'S DISEASE
     Dates: end: 20101201
  4. RITONAVIR [Concomitant]
     Indication: HIV INFECTION
     Route: 048
     Dates: start: 20090301

REACTIONS (3)
  - KAPOSI'S SARCOMA [None]
  - CASTLEMAN'S DISEASE [None]
  - IMMUNE RECONSTITUTION SYNDROME [None]
